FAERS Safety Report 7439516-2 (Version None)
Quarter: 2011Q2

REPORT INFORMATION
  Report Type: 
  Country: None (occurrence: None)
  Receive Date: 20110427
  Receipt Date: 20110415
  Transmission Date: 20111010
  Serious: Yes (Other)
  Sender: FDA-Public Use
  Company Number: GB-BRISTOL-MYERS SQUIBB COMPANY-15679855

PATIENT
  Sex: Male

DRUGS (1)
  1. HYDREA [Suspect]
     Dates: start: 19840101

REACTIONS (1)
  - VASCULITIC RASH [None]
